FAERS Safety Report 16924573 (Version 1)
Quarter: 2019Q4

REPORT INFORMATION
  Report Type: Spontaneous
  Country: US (occurrence: US)
  Receive Date: 20191015
  Receipt Date: 20191015
  Transmission Date: 20200122
  Serious: Yes (Other)
  Sender: FDA-Public Use
  Company Number: None

PATIENT
  Age: 65 Year
  Sex: Female
  Weight: 90 kg

DRUGS (1)
  1. FLUCONAZOLE. [Suspect]
     Active Substance: FLUCONAZOLE
     Indication: FUNGAL SKIN INFECTION
     Dosage: ?          QUANTITY:1 TABLET(S);OTHER FREQUENCY:1X;?
     Route: 048
     Dates: start: 20191012, end: 20191012

REACTIONS (1)
  - Angioedema [None]

NARRATIVE: CASE EVENT DATE: 20191012
